FAERS Safety Report 9227855 (Version 2)
Quarter: 2013Q2

REPORT INFORMATION
  Report Type: Spontaneous
  Country: JP (occurrence: JP)
  Receive Date: 20130412
  Receipt Date: 20130423
  Transmission Date: 20140414
  Serious: Yes (Other)
  Sender: FDA-Public Use
  Company Number: JP-PFIZER INC-2013114397

PATIENT
  Sex: Female
  Weight: 80 kg

DRUGS (2)
  1. LIPITOR [Suspect]
     Dosage: UNK
     Route: 048
  2. AMLODIN [Concomitant]
     Dosage: UNK

REACTIONS (2)
  - Weight increased [Unknown]
  - Diabetes mellitus [Unknown]
